FAERS Safety Report 8804041 (Version 2)
Quarter: 2016Q1

REPORT INFORMATION
  Report Type: Spontaneous
  Country: US (occurrence: US)
  Receive Date: 20120924
  Receipt Date: 20160311
  Transmission Date: 20160526
  Serious: Yes (Death, Hospitalization, Other)
  Sender: FDA-Public Use
  Company Number: US-GLAXOSMITHKLINE-A0994410A

PATIENT
  Sex: Female

DRUGS (2)
  1. AVANDIA [Suspect]
     Active Substance: ROSIGLITAZONE MALEATE
     Indication: DIABETES MELLITUS
     Dosage: 4 MG, QD
     Route: 048
  2. AVANDAMET [Suspect]
     Active Substance: METFORMIN HYDROCHLORIDE\ROSIGLITAZONE MALEATE
     Indication: DIABETES MELLITUS
     Dosage: 4MG/500MG, BID
     Route: 048

REACTIONS (7)
  - Dementia Alzheimer^s type [Fatal]
  - Diastolic dysfunction [Unknown]
  - Cardiomegaly [Unknown]
  - Mitral valve incompetence [Unknown]
  - Hepatic cancer [Fatal]
  - Failure to thrive [Fatal]
  - Tricuspid valve incompetence [Unknown]
